FAERS Safety Report 23764320 (Version 1)
Quarter: 2024Q2

REPORT INFORMATION
  Report Type: Spontaneous
  Country: CA (occurrence: CA)
  Receive Date: 20240420
  Receipt Date: 20240420
  Transmission Date: 20240715
  Serious: Yes (Life-Threatening, Other)
  Sender: FDA-Public Use
  Company Number: CA-TEVA-VS-3183645

PATIENT
  Age: 60 Year
  Sex: Female

DRUGS (11)
  1. ETOPOSIDE [Suspect]
     Active Substance: ETOPOSIDE
     Indication: Radiotherapy
     Route: 042
  2. ATORVASTATIN CALCIUM [Concomitant]
     Active Substance: ATORVASTATIN CALCIUM
     Dosage: DOSE FORM: NOT SPECIFIED
     Route: 065
  3. CANDESARTAN [Concomitant]
     Active Substance: CANDESARTAN
     Route: 065
  4. CISPLATIN [Concomitant]
     Active Substance: CISPLATIN
     Route: 042
  5. DEXAMETHASONE [Concomitant]
     Active Substance: DEXAMETHASONE
     Dosage: DOSE FORM: NOT SPECIFIED
     Route: 065
  6. EDOXABAN TOSYLATE [Concomitant]
     Active Substance: EDOXABAN TOSYLATE
     Route: 065
  7. ONDANSETRON [Concomitant]
     Active Substance: ONDANSETRON
     Dosage: DOSE FORM: NOT SPECIFIED
     Route: 065
  8. ONDANSETRON [Concomitant]
     Active Substance: ONDANSETRON
     Dosage: DOSE FORM: NOT SPECIFIED
     Route: 065
  9. PANTOPRAZOLE [Concomitant]
     Active Substance: PANTOPRAZOLE
     Dosage: DOSE FORM: NOT SPECIFIED
     Route: 065
  10. POTASSIUM CHLORIDE [Concomitant]
     Active Substance: POTASSIUM CHLORIDE
     Dosage: INJ 30MEQ
     Route: 065
  11. PROCHLORPERAZINE [Concomitant]
     Active Substance: PROCHLORPERAZINE
     Dosage: DOSE FORM: NOT SPECIFIED
     Route: 065

REACTIONS (3)
  - Pulmonary embolism [Recovering/Resolving]
  - Anaphylactic reaction [Recovering/Resolving]
  - Cardio-respiratory arrest [Recovering/Resolving]
